FAERS Safety Report 4941611-4 (Version None)
Quarter: 2006Q1

REPORT INFORMATION
  Report Type: 
  Country: None (occurrence: None)
  Receive Date: 20060307
  Receipt Date: 20060227
  Transmission Date: 20060701
  Serious: Yes (Death)
  Sender: FDA-Public Use
  Company Number: 06H-163-0305787-00

PATIENT
  Age: 79 Year
  Sex: Male

DRUGS (1)
  1. MAGNESIUM SULFATE [Suspect]
     Indication: DIALYSIS
     Dosage: INTRAVENOUS DRIP
     Route: 041
     Dates: start: 20060208, end: 20060208

REACTIONS (6)
  - CARDIAC ARREST [None]
  - DEPRESSED LEVEL OF CONSCIOUSNESS [None]
  - FEELING HOT [None]
  - MEDICATION ERROR [None]
  - THIRST [None]
  - WRONG DRUG ADMINISTERED [None]
